FAERS Safety Report 23197183 (Version 2)
Quarter: 2023Q4

REPORT INFORMATION
  Report Type: Spontaneous
  Country: US (occurrence: US)
  Receive Date: 20231117
  Receipt Date: 20231121
  Transmission Date: 20240109
  Serious: No
  Sender: FDA-Public Use
  Company Number: US-ANIPHARMA-2023-US-006552

PATIENT
  Age: 17 Year
  Sex: Male

DRUGS (1)
  1. VANCOMYCIN HYDROCHLORIDE [Suspect]
     Active Substance: VANCOMYCIN HYDROCHLORIDE
     Indication: Clostridium difficile infection
     Dosage: 125MG 4 TIMES A DAY FOR 10 DAYS, THEN, 125MG 3 TIMES A DAY FOR 30 DAYS
     Route: 065
     Dates: start: 20230209

REACTIONS (2)
  - Drug ineffective [Unknown]
  - Clostridium difficile infection [Unknown]

NARRATIVE: CASE EVENT DATE: 20230224
